FAERS Safety Report 10385444 (Version 1)
Quarter: 2014Q3

REPORT INFORMATION
  Report Type: Spontaneous
  Country: US (occurrence: None)
  Receive Date: 20140807
  Receipt Date: 20140807
  Transmission Date: 20150326
  Serious: Yes (Other)
  Sender: FDA-Public Use
  Company Number: 25154444201400005

PATIENT
  Sex: Male

DRUGS (1)
  1. HAWAIIAN TROPIC SHEER TOUCH SPF 30 [Suspect]
     Active Substance: AVOBENZONE\OCTOCRYLENE\OXYBENZONE
     Indication: PROPHYLAXIS AGAINST SOLAR RADIATION
     Dates: start: 20140410

REACTIONS (5)
  - Chemical injury [None]
  - Rash erythematous [None]
  - Application site rash [None]
  - Rash [None]
  - Rash pruritic [None]

NARRATIVE: CASE EVENT DATE: 20140410
